FAERS Safety Report 7332252-2 (Version None)
Quarter: 2011Q1

REPORT INFORMATION
  Report Type: 
  Country: None (occurrence: None)
  Receive Date: 20110304
  Receipt Date: 20110302
  Transmission Date: 20110831
  Serious: Yes (Other)
  Sender: FDA-Public Use
  Company Number: US-ROCHE-701332

PATIENT
  Sex: Female
  Weight: 99.8 kg

DRUGS (2)
  1. ACCUTANE [Suspect]
     Indication: ACNE
     Route: 048
     Dates: start: 20020901, end: 20021201
  2. ORTHO TRI-CYCLEN [Concomitant]

REACTIONS (7)
  - BIPOLAR II DISORDER [None]
  - COLITIS ULCERATIVE [None]
  - DEPRESSION [None]
  - SUICIDE ATTEMPT [None]
  - INFLAMMATORY BOWEL DISEASE [None]
  - SUICIDAL IDEATION [None]
  - ANXIETY [None]
